FAERS Safety Report 12264627 (Version 1)
Quarter: 2016Q2

REPORT INFORMATION
  Report Type: Spontaneous
  Country: US (occurrence: US)
  Receive Date: 20160413
  Receipt Date: 20160413
  Transmission Date: 20160815
  Serious: No
  Sender: FDA-Public Use
  Company Number: US-JNJFOC-20160320353

PATIENT
  Age: 73 Year
  Sex: Female
  Weight: 47.63 kg

DRUGS (2)
  1. WOMENS ROGAINE UNSCENTED [Suspect]
     Active Substance: MINOXIDIL
     Indication: ALOPECIA
     Dosage: 1/2 CAPFUL DAILY.
     Route: 061
     Dates: end: 20160225
  2. WOMENS ROGAINE UNSCENTED [Suspect]
     Active Substance: MINOXIDIL
     Route: 061

REACTIONS (6)
  - Dizziness [Not Recovered/Not Resolved]
  - Sinusitis [Not Recovered/Not Resolved]
  - Heart rate increased [Not Recovered/Not Resolved]
  - Blood pressure increased [Not Recovered/Not Resolved]
  - Feeling hot [Not Recovered/Not Resolved]
  - Flushing [Not Recovered/Not Resolved]
